FAERS Safety Report 4446343-7 (Version None)
Quarter: 2004Q3

REPORT INFORMATION
  Report Type: 
  Country: None (occurrence: None)
  Receive Date: 20040910
  Receipt Date: 20040813
  Transmission Date: 20050211
  Serious: Yes (Hospitalization)
  Sender: FDA-Public Use
  Company Number: TW-BRISTOL-MYERS SQUIBB COMPANY-12670311

PATIENT
  Age: 52 Year
  Sex: Female

DRUGS (8)
  1. ABATACEPT [Suspect]
     Indication: RHEUMATOID ARTHRITIS
     Route: 042
     Dates: start: 20040618
  2. METHOTREXATE [Suspect]
     Indication: RHEUMATOID ARTHRITIS
     Route: 048
     Dates: start: 20020208
  3. GASCON [Concomitant]
     Route: 048
  4. FOLIC ACID [Concomitant]
     Route: 048
  5. CELEBREX [Concomitant]
     Route: 048
  6. MEDICON [Concomitant]
     Dosage: DOSAGE FORM = CAPSULE
     Route: 048
  7. VIDISIC [Concomitant]
     Route: 047
  8. ARTELAC [Concomitant]
     Route: 047

REACTIONS (1)
  - BRONCHITIS ACUTE [None]
